FAERS Safety Report 6754997-5 (Version None)
Quarter: 2010Q2

REPORT INFORMATION
  Report Type: 
  Country: None (occurrence: None)
  Receive Date: 20100528
  Receipt Date: 20100517
  Transmission Date: 20101027
  Serious: Yes (Death)
  Sender: FDA-Public Use
  Company Number: AUR-APL-2010-00918

PATIENT
  Age: 42 Year
  Sex: Male

DRUGS (4)
  1. CIPROFLOXACIN [Suspect]
  2. FLUCONAZOLE [Suspect]
  3. METRONIDAZOLE [Suspect]
  4. PHENYTOIN [Suspect]

REACTIONS (12)
  - ACUTE HEPATIC FAILURE [None]
  - BRAIN ABSCESS [None]
  - BRAIN HERNIATION [None]
  - BRAIN OEDEMA [None]
  - DRUG INTERACTION [None]
  - HEPATIC ENCEPHALOPATHY [None]
  - HEPATIC FAILURE [None]
  - HEPATITIS ACUTE [None]
  - IDIOSYNCRATIC DRUG REACTION [None]
  - MASTOID ABSCESS [None]
  - PULMONARY CONGESTION [None]
  - PULMONARY OEDEMA [None]
